FAERS Safety Report 9994357 (Version 1)
Quarter: 2014Q1

REPORT INFORMATION
  Report Type: Spontaneous
  Country: DE (occurrence: DE)
  Receive Date: 20140311
  Receipt Date: 20140311
  Transmission Date: 20141002
  Serious: Yes (Life-Threatening, Other)
  Sender: FDA-Public Use
  Company Number: DE-ROCHE-1362326

PATIENT
  Age: 55 Year
  Sex: Male

DRUGS (4)
  1. TENECTEPLASE [Suspect]
     Indication: MYOCARDIAL INFARCTION
     Dosage: 1000 U
     Route: 065
  2. ASPIRIN [Suspect]
     Indication: ANTICOAGULANT THERAPY
     Route: 065
  3. PRASUGREL [Suspect]
     Indication: MYOCARDIAL INFARCTION
     Route: 065
  4. HEPARIN [Suspect]
     Indication: PERCUTANEOUS CORONARY INTERVENTION
     Dosage: 6000 U
     Route: 065

REACTIONS (4)
  - Thyroid haemorrhage [Unknown]
  - Dysphagia [Unknown]
  - Oropharyngeal pain [Unknown]
  - Local swelling [Unknown]
